FAERS Safety Report 6638441-4 (Version None)
Quarter: 2010Q1

REPORT INFORMATION
  Report Type: 
  Country: None (occurrence: None)
  Receive Date: 20100316
  Receipt Date: 20100316
  Transmission Date: 20100710
  Serious: No
  Sender: FDA-Public Use
  Company Number: None

PATIENT
  Age: 73 Year
  Sex: Female
  Weight: 58.9676 kg

DRUGS (2)
  1. MAALOX TOTAL RELIEF, MAX. STRENGTH [Suspect]
     Indication: DYSPEPSIA
     Dosage: 2 TABLESP, 11TH FEB ONE MORN, ONE EVEN. 2 TABLESP, 12TH FEB 1 MORN, 1 EVENING
     Dates: start: 20100210
  2. MAALOX TOTAL RELIEF, MAX. STRENGTH [Suspect]
     Indication: DYSPEPSIA
     Dosage: 2 TABLESP, 11TH FEB ONE MORN, ONE EVEN. 2 TABLESP, 12TH FEB 1 MORN, 1 EVENING
     Dates: start: 20100211

REACTIONS (3)
  - FAECES DISCOLOURED [None]
  - MUSCLE SPASMS [None]
  - PRODUCT QUALITY ISSUE [None]
